FAERS Safety Report 9811910 (Version 3)
Quarter: 2016Q4

REPORT INFORMATION
  Report Type: Spontaneous
  Country: US (occurrence: US)
  Receive Date: 20140110
  Receipt Date: 20161219
  Transmission Date: 20170207
  Serious: Yes (Hospitalization, Other)
  Sender: FDA-Public Use
  Company Number: US-SANOFI-AVENTIS-2013SA068551

PATIENT
  Age: 69 Year
  Sex: Male
  Weight: 99.7 kg

DRUGS (56)
  1. COUMADIN [Concomitant]
     Active Substance: WARFARIN SODIUM
     Indication: DEEP VEIN THROMBOSIS
     Dosage: DOSE: 4 TABS FOR 2 DAYS, 6 TABS FOR 1 DAY, REPEAT ONCE A DAY
  2. ATENOLOL. [Concomitant]
     Active Substance: ATENOLOL
     Indication: HYPERTENSION
  3. XARELTO [Concomitant]
     Active Substance: RIVAROXABAN
  4. GLUCOPHAGE [Concomitant]
     Active Substance: METFORMIN HYDROCHLORIDE
  5. INSULIN LISPRO [Concomitant]
     Active Substance: INSULIN LISPRO
     Dosage: BEFORE MEALS AND AFTER BEDTIME DOSE:7 UNIT(S)
  6. FEXOFENADINE [Concomitant]
     Active Substance: FEXOFENADINE\FEXOFENADINE HYDROCHLORIDE
     Route: 048
  7. OXYCOD [Concomitant]
     Indication: PAIN
  8. NEXIUM [Concomitant]
     Active Substance: ESOMEPRAZOLE MAGNESIUM
     Indication: GASTROOESOPHAGEAL REFLUX DISEASE
  9. NEUTRA-PHOS [Concomitant]
     Active Substance: POTASSIUM PHOSPHATE, DIBASIC\POTASSIUM PHOSPHATE, MONOBASIC\SODIUM PHOSPHATE, DIBASIC\SODIUM PHOSPHATE, MONOBASIC
  10. HYDROCODONE [Concomitant]
     Active Substance: HYDROCODONE
     Dosage: DOSE: 7.5/500 MG
  11. ASPIRIN. [Concomitant]
     Active Substance: ASPIRIN
     Indication: CARDIAC DISORDER
     Route: 065
  12. ATORVASTATIN CALCIUM. [Concomitant]
     Active Substance: ATORVASTATIN CALCIUM
  13. CRESTOR [Concomitant]
     Active Substance: ROSUVASTATIN CALCIUM
     Route: 048
  14. ERGOCALCIFEROL. [Concomitant]
     Active Substance: ERGOCALCIFEROL
     Dosage: STRENGTH: 50,000 UNIT
     Route: 048
  15. EPINEPHRINE. [Concomitant]
     Active Substance: EPINEPHRINE
     Dosage: SOLUTION
     Route: 042
  16. WARFARIN [Concomitant]
     Active Substance: WARFARIN
     Indication: ANTICOAGULANT THERAPY
     Dosage: 5 TIMES A DAY
  17. ATENOLOL. [Concomitant]
     Active Substance: ATENOLOL
     Indication: HYPERTENSION
  18. ALPRAZOLAM. [Concomitant]
     Active Substance: ALPRAZOLAM
     Indication: ANXIETY
     Dosage: 3 TIMES A DAY
  19. VIAGRA [Concomitant]
     Active Substance: SILDENAFIL CITRATE
  20. MEXILETINE HYDROCHLORIDE. [Concomitant]
     Active Substance: MEXILETINE HYDROCHLORIDE
     Route: 048
  21. LIBRIUM [Concomitant]
     Active Substance: CHLORDIAZEPOXIDE HYDROCHLORIDE
  22. ZOCOR [Concomitant]
     Active Substance: SIMVASTATIN
  23. VIAGRA [Concomitant]
     Active Substance: SILDENAFIL CITRATE
     Indication: ERECTILE DYSFUNCTION
  24. VASOPRESSIN INJECTION [Concomitant]
     Active Substance: VASOPRESSIN
     Dosage: DOSE:40 UNIT(S)
  25. FIORICET [Concomitant]
     Active Substance: ACETAMINOPHEN\BUTALBITAL\CAFFEINE
     Route: 048
  26. INSULIN [Concomitant]
     Active Substance: INSULIN NOS
     Indication: DIABETES MELLITUS
  27. LISINOPRIL. [Concomitant]
     Active Substance: LISINOPRIL
     Indication: HYPERTENSION
  28. FISH OIL [Concomitant]
     Active Substance: FISH OIL
  29. NIACIN. [Concomitant]
     Active Substance: NIACIN
     Dosage: DOSE:  ONE DAILY - ACTUALLY IN 2 TABS BID
     Route: 048
  30. VITAMIN D3 [Concomitant]
     Active Substance: CHOLECALCIFEROL
     Route: 048
  31. HUMULIN N [Concomitant]
     Active Substance: INSULIN HUMAN
     Dosage: 45 UNITS IN MORNING (AM) AND 50 UNITS IN NIGHT (PM)
  32. PLAVIX [Suspect]
     Active Substance: CLOPIDOGREL BISULFATE
     Indication: PERIPHERAL ARTERIAL OCCLUSIVE DISEASE
     Route: 048
     Dates: start: 19990101, end: 20121201
  33. NOVOLOG [Concomitant]
     Active Substance: INSULIN ASPART
     Indication: DIABETES MELLITUS
     Dosage: DOSE + FREQUENCY:160-165 UNITS DAILY AS NEEDED PER PUMP
  34. VYTORIN [Concomitant]
     Active Substance: EZETIMIBE\SIMVASTATIN
     Indication: HYPERLIPIDAEMIA
  35. NIASPAN [Concomitant]
     Active Substance: NIACIN
     Dosage: FORM: TABLET CONTROLLED RELEASE?DOSE: ONE AT BEDTIME FOR 2 WEEKS THEN 2 AT BEDTIME.
     Route: 048
  36. VITAMIN B12 [Concomitant]
     Active Substance: CYANOCOBALAMIN
     Dosage: STRENGTH: 1000 MCG
     Route: 048
  37. VITAMIN C [Concomitant]
     Active Substance: ASCORBIC ACID
     Dosage: STRENGTH:500 MG
     Route: 048
  38. NEURONTIN [Concomitant]
     Active Substance: GABAPENTIN
     Indication: NEUROPATHY PERIPHERAL
  39. HUMULIN N [Concomitant]
     Active Substance: INSULIN HUMAN
     Dosage: IN THE MORNING (AM) DOSE:35 UNIT(S)
  40. AMIODARONE [Concomitant]
     Active Substance: AMIODARONE
     Dosage: SOLUTION
     Route: 042
  41. CENTRUM SILVER [Concomitant]
     Active Substance: MINERALS\VITAMINS
     Indication: SUPPLEMENTATION THERAPY
  42. PRILOSEC [Concomitant]
     Active Substance: OMEPRAZOLE MAGNESIUM
     Route: 048
  43. ALLOPURINOL. [Concomitant]
     Active Substance: ALLOPURINOL
     Indication: GOUT
     Dosage: STRENGTH: 300 MG
  44. PERCOCET [Concomitant]
     Active Substance: ACETAMINOPHEN\OXYCODONE HYDROCHLORIDE
     Indication: BACK PAIN
     Dosage: DOSE:7-5-325 MG
  45. LASIX [Concomitant]
     Active Substance: FUROSEMIDE
     Indication: SWELLING
  46. NOVOLIN [Concomitant]
     Active Substance: INSULIN HUMAN
     Route: 058
  47. AMBIEN [Concomitant]
     Active Substance: ZOLPIDEM TARTRATE
  48. PRINIVIL [Concomitant]
     Active Substance: LISINOPRIL
  49. ATROPINE. [Concomitant]
     Active Substance: ATROPINE
     Dosage: FORM: SOLUTION
     Route: 042
  50. PROTONIX [Concomitant]
     Active Substance: PANTOPRAZOLE SODIUM
     Route: 048
  51. LASIX [Concomitant]
     Active Substance: FUROSEMIDE
     Indication: FLUID RETENTION
  52. FENOFIBRATE. [Concomitant]
     Active Substance: FENOFIBRATE
     Indication: BLOOD TRIGLYCERIDES
     Dosage: WITH MEAL
     Route: 048
  53. XANAX [Concomitant]
     Active Substance: ALPRAZOLAM
  54. SENNA [Concomitant]
     Active Substance: SENNA LEAF\SENNOSIDES\SENNOSIDES A AND B
  55. INSULIN, REGULAR [Concomitant]
     Active Substance: INSULIN NOS
  56. ALIGN [Concomitant]
     Active Substance: BIFIDOBACTERIUM LONGUM SUBSP. INFANTIS
     Indication: SUPPLEMENTATION THERAPY

REACTIONS (6)
  - Oedema [Unknown]
  - Gastrointestinal haemorrhage [Unknown]
  - Drug intolerance [Unknown]
  - Memory impairment [Unknown]
  - Sleep apnoea syndrome [Unknown]
  - Subdural haematoma [Unknown]

NARRATIVE: CASE EVENT DATE: 201109
